FAERS Safety Report 21577666 (Version 3)
Quarter: 2022Q4

REPORT INFORMATION
  Report Type: Spontaneous
  Country: GR (occurrence: GR)
  Receive Date: 20221110
  Receipt Date: 20221223
  Transmission Date: 20230113
  Serious: No
  Sender: FDA-Public Use
  Company Number: GR-PFIZER INC-PV202200093544

PATIENT
  Age: 8 Year
  Sex: Male
  Weight: 35 kg

DRUGS (1)
  1. GENOTROPIN [Suspect]
     Active Substance: SOMATROPIN
     Indication: Hypopituitarism
     Dosage: 3.5 MG, WEEKLY /7 DAYS/5.3 MG PEN
     Route: 058
     Dates: start: 202103

REACTIONS (2)
  - Drug dose omission by device [Unknown]
  - Device operational issue [Unknown]
